FAERS Safety Report 14398604 (Version 3)
Quarter: 2018Q2

REPORT INFORMATION
  Report Type: Report from Study
  Country: CA (occurrence: CA)
  Receive Date: 20180117
  Receipt Date: 20180507
  Transmission Date: 20180711
  Serious: Yes (Other)
  Sender: FDA-Public Use
  Company Number: CA-UCBSA-2018001051

PATIENT
  Sex: Female

DRUGS (1)
  1. CERTOLIZUMAB PEGOL ASP [Suspect]
     Active Substance: CERTOLIZUMAB PEGOL
     Indication: ANKYLOSING SPONDYLITIS
     Dosage: 400 MG, EV 2 WEEKS(QOW) X 3
     Route: 058

REACTIONS (3)
  - Influenza [Recovering/Resolving]
  - Nasopharyngitis [Recovering/Resolving]
  - Bronchitis [Recovering/Resolving]
